FAERS Safety Report 12626678 (Version 2)
Quarter: 2016Q3

REPORT INFORMATION
  Report Type: Report from Study
  Country: IN (occurrence: IN)
  Receive Date: 20160805
  Receipt Date: 20160823
  Transmission Date: 20161109
  Serious: Yes (Death, Hospitalization, Other)
  Sender: FDA-Public Use
  Company Number: PHHY2011IN109598

PATIENT
  Sex: Female

DRUGS (3)
  1. GLIVEC [Suspect]
     Active Substance: IMATINIB MESYLATE
     Dosage: 400 MG, UNK
     Route: 065
  2. GLIVEC [Suspect]
     Active Substance: IMATINIB MESYLATE
     Indication: GASTROINTESTINAL STROMAL TUMOUR
     Dosage: 400 MG, UNK
     Route: 065
  3. GLIVEC [Suspect]
     Active Substance: IMATINIB MESYLATE
     Dosage: 300 MG, UNK
     Route: 065

REACTIONS (15)
  - Cachexia [Unknown]
  - Death [Fatal]
  - Cachexia [Recovered/Resolved]
  - Diarrhoea [Unknown]
  - Malignant neoplasm progression [Unknown]
  - Anaemia [Recovered/Resolved]
  - Gastrointestinal stromal tumour [Unknown]
  - Recurrent cancer [Unknown]
  - Drug intolerance [Unknown]
  - Anaemia [Unknown]
  - Tumour pain [Unknown]
  - Toxicity to various agents [Unknown]
  - Skin ulcer [Unknown]
  - Diarrhoea [Recovered/Resolved]
  - Renal disorder [Unknown]
